FAERS Safety Report 24025997 (Version 4)
Quarter: 2024Q3

REPORT INFORMATION
  Report Type: Report from Study
  Country: US (occurrence: US)
  Receive Date: 20240628
  Receipt Date: 20240710
  Transmission Date: 20241017
  Serious: No
  Sender: ROCHE
  Company Number: US-ROCHE-3535834

PATIENT
  Age: 67 Year
  Sex: Female
  Weight: 99.79 kg

DRUGS (8)
  1. PHESGO [Suspect]
     Active Substance: HYALURONIDASE-ZZXF\PERTUZUMAB\TRASTUZUMAB
     Indication: Breast cancer female
     Dosage: ONCE, 600/600 MG THERAPY DATES: 19/MAR/2024, 09/APR/2024,30/APR/2024, 23/MAY/2024?1200 MG BY 600 MG
     Route: 058
     Dates: start: 20240206
  2. PHESGO [Suspect]
     Active Substance: HYALURONIDASE-ZZXF\PERTUZUMAB\TRASTUZUMAB
     Dosage: ONCE
     Route: 058
  3. CHLORTHALIDONE [Concomitant]
     Active Substance: CHLORTHALIDONE
     Route: 048
  4. LEVOTHYROXINE [Concomitant]
     Active Substance: LEVOTHYROXINE\LEVOTHYROXINE SODIUM
     Route: 048
  5. LIVALO [Concomitant]
     Active Substance: PITAVASTATIN CALCIUM
     Route: 048
  6. OLMESARTAN [Concomitant]
     Active Substance: OLMESARTAN
     Route: 048
  7. DOCETAXEL [Concomitant]
     Active Substance: DOCETAXEL\DOCETAXEL ANHYDROUS
     Route: 042
  8. CARBOPLATIN [Concomitant]
     Active Substance: CARBOPLATIN
     Route: 042

REACTIONS (11)
  - Stomatitis [Unknown]
  - Diarrhoea [Unknown]
  - Insomnia [Unknown]
  - Dehydration [Unknown]
  - Herpes dermatitis [Unknown]
  - Arthralgia [Unknown]
  - Anaemia [Unknown]
  - Parosmia [Unknown]
  - Hypokalaemia [Unknown]
  - Chronic kidney disease [Unknown]
  - Taste disorder [Unknown]
